FAERS Safety Report 10716371 (Version 12)
Quarter: 2018Q4

REPORT INFORMATION
  Report Type: Report from Study
  Country: None (occurrence: US)
  Receive Date: 20150116
  Receipt Date: 20181209
  Transmission Date: 20190204
  Serious: Yes (Hospitalization, Other)
  Sender: FDA-Public Use
  Company Number: US-ABBVIE-12P-163-1026360-00

PATIENT
  Age: 66 Year
  Sex: Female
  Weight: 47.22 kg

DRUGS (20)
  1. HUMIRA [Suspect]
     Active Substance: ADALIMUMAB
     Indication: PSORIASIS
     Route: 058
     Dates: start: 2013, end: 2014
  2. DIAZEPAM. [Concomitant]
     Active Substance: DIAZEPAM
     Indication: ANXIETY
  3. DIAZEPAM. [Concomitant]
     Active Substance: DIAZEPAM
     Indication: MUSCLE SPASMS
  4. VITAMIN A [Concomitant]
     Active Substance: VITAMIN A
     Indication: VITAMIN SUPPLEMENTATION
  5. DIAZEPAM. [Concomitant]
     Active Substance: DIAZEPAM
     Indication: ANXIETY
  6. VITAMIN E [Concomitant]
     Active Substance: .ALPHA.-TOCOPHEROL
     Indication: VITAMIN SUPPLEMENTATION
  7. HUMIRA [Suspect]
     Active Substance: ADALIMUMAB
     Indication: PSORIATIC ARTHROPATHY
     Route: 058
     Dates: start: 201205
  8. HUMIRA [Suspect]
     Active Substance: ADALIMUMAB
     Indication: RHEUMATOID ARTHRITIS
     Route: 058
     Dates: end: 201510
  9. VITAMIN D [Concomitant]
     Active Substance: CHOLECALCIFEROL
     Indication: VITAMIN SUPPLEMENTATION
  10. FLAXSEED [Concomitant]
     Active Substance: FLAX SEED
     Indication: VITAMIN SUPPLEMENTATION
  11. HUMIRA [Suspect]
     Active Substance: ADALIMUMAB
     Route: 058
  12. OXYCODONE [Concomitant]
     Active Substance: OXYCODONE
     Indication: RHEUMATOID ARTHRITIS
  13. VITAMIN C [Concomitant]
     Active Substance: ASCORBIC ACID
     Indication: VITAMIN SUPPLEMENTATION
  14. OXYCODONE [Concomitant]
     Active Substance: OXYCODONE
     Indication: PAIN
  15. OXYCODONE [Concomitant]
     Active Substance: OXYCODONE
     Indication: PSORIATIC ARTHROPATHY
  16. ROXICODONE [Concomitant]
     Active Substance: OXYCODONE HYDROCHLORIDE
     Indication: ARTHRALGIA
  17. VALIUM [Concomitant]
     Active Substance: DIAZEPAM
     Indication: PAIN
  18. VITAMIN B [Concomitant]
     Active Substance: VITAMIN B
     Indication: VITAMIN SUPPLEMENTATION
  19. POTASSIUM [Concomitant]
     Active Substance: POTASSIUM
     Indication: MINERAL SUPPLEMENTATION
  20. DIAZEPAM. [Concomitant]
     Active Substance: DIAZEPAM
     Indication: MUSCLE SPASMS

REACTIONS (67)
  - Gait disturbance [Unknown]
  - Joint noise [Not Recovered/Not Resolved]
  - Incorrect dose administered [Unknown]
  - Dysphagia [Recovered/Resolved]
  - Lacrimation increased [Unknown]
  - Knee arthroplasty [Recovered/Resolved with Sequelae]
  - Thrombosis [Recovered/Resolved]
  - Drug ineffective [Not Recovered/Not Resolved]
  - Device issue [Unknown]
  - Psoriasis [Recovered/Resolved]
  - Injection site infection [Recovered/Resolved]
  - Carpal tunnel syndrome [Unknown]
  - Fall [Unknown]
  - Nephrolithiasis [Unknown]
  - Vision blurred [Unknown]
  - Neoplasm malignant [Unknown]
  - Therapeutic response shortened [Not Recovered/Not Resolved]
  - Tinnitus [Unknown]
  - Cardiac disorder [Unknown]
  - Pruritus [Unknown]
  - Omphalitis [Recovered/Resolved]
  - Basal cell carcinoma [Recovered/Resolved]
  - Skin cancer [Recovered/Resolved]
  - Abdominal operation [Unknown]
  - Sensitivity to weather change [Unknown]
  - Burning sensation [Unknown]
  - Joint injection [Unknown]
  - Arthralgia [Not Recovered/Not Resolved]
  - Intracranial aneurysm [Recovered/Resolved]
  - Malignant melanoma [Recovered/Resolved]
  - Bladder cancer [Unknown]
  - Ligament sprain [Not Recovered/Not Resolved]
  - Arthropathy [Unknown]
  - Device issue [Unknown]
  - Vaginal haemorrhage [Recovering/Resolving]
  - Fall [Recovered/Resolved]
  - Lung disorder [Not Recovered/Not Resolved]
  - Malaise [Not Recovered/Not Resolved]
  - Basal cell carcinoma [Recovered/Resolved]
  - Incorrect dose administered [Unknown]
  - Pain in extremity [Unknown]
  - Arthritis [Unknown]
  - Peripheral swelling [Unknown]
  - Facial paralysis [Recovering/Resolving]
  - Pain [Not Recovered/Not Resolved]
  - Post procedural haemorrhage [Not Recovered/Not Resolved]
  - Pain [Unknown]
  - Injection site discharge [Recovered/Resolved]
  - Procedural pain [Not Recovered/Not Resolved]
  - Vulvovaginal discomfort [Recovering/Resolving]
  - Blood urine present [Recovering/Resolving]
  - Grip strength decreased [Unknown]
  - Angiopathy [Unknown]
  - Joint swelling [Unknown]
  - Cardiac disorder [Not Recovered/Not Resolved]
  - Neoplasm malignant [Not Recovered/Not Resolved]
  - Skin discolouration [Not Recovered/Not Resolved]
  - Stent removal [Recovering/Resolving]
  - Pain in extremity [Recovered/Resolved with Sequelae]
  - Exostosis [Not Recovered/Not Resolved]
  - Synovial cyst [Not Recovered/Not Resolved]
  - Rash macular [Unknown]
  - Depression [Unknown]
  - Vein disorder [Unknown]
  - Bacterial infection [Recovered/Resolved]
  - Urinary tract infection [Recovered/Resolved]
  - Herpes zoster [Recovering/Resolving]

NARRATIVE: CASE EVENT DATE: 2012
